FAERS Safety Report 7931715-6 (Version None)
Quarter: 2011Q4

REPORT INFORMATION
  Report Type: 
  Country: None (occurrence: None)
  Receive Date: 20111121
  Receipt Date: 20111114
  Transmission Date: 20120403
  Serious: Yes (Life-Threatening, Other)
  Sender: FDA-Public Use
  Company Number: PHEH2011US009314

PATIENT
  Age: 56 Year
  Sex: Male

DRUGS (3)
  1. DIOVAN [Suspect]
     Dosage: UNK
  2. PERCOCET [Suspect]
     Dosage: 5.25 MG, 2-6/ PER DAY
  3. VALIUM [Concomitant]
     Dosage: 5 MG, ,2-6/ PER DAY

REACTIONS (5)
  - SOMNOLENCE [None]
  - PAIN [None]
  - GENERAL PHYSICAL CONDITION ABNORMAL [None]
  - HYPOTHYROIDISM [None]
  - BLOOD PRESSURE INADEQUATELY CONTROLLED [None]
